FAERS Safety Report 6308228-0 (Version None)
Quarter: 2009Q3

REPORT INFORMATION
  Report Type: 
  Country: None (occurrence: None)
  Receive Date: 20090810
  Receipt Date: 20090728
  Transmission Date: 20100115
  Serious: Yes (Other)
  Sender: FDA-Public Use
  Company Number: HECT-1000048

PATIENT
  Age: 58 Year
  Sex: Male
  Weight: 62.5 kg

DRUGS (15)
  1. HECTOROL [Suspect]
     Indication: HYPERPARATHYROIDISM SECONDARY
     Dosage: 1 MCG, INTRAVENOUS; 5 MCG, INTRAVENOUS; 4 MCG, INTRAVENOUS
     Route: 042
     Dates: start: 20090109, end: 20090311
  2. HECTOROL [Suspect]
     Indication: HYPERPARATHYROIDISM SECONDARY
     Dosage: 1 MCG, INTRAVENOUS; 5 MCG, INTRAVENOUS; 4 MCG, INTRAVENOUS
     Route: 042
     Dates: start: 20090311, end: 20090408
  3. HECTOROL [Suspect]
     Indication: HYPERPARATHYROIDISM SECONDARY
     Dosage: 1 MCG, INTRAVENOUS; 5 MCG, INTRAVENOUS; 4 MCG, INTRAVENOUS
     Route: 042
     Dates: start: 20090408, end: 20090420
  4. SENSIPAR [Concomitant]
  5. ATENOLOL [Concomitant]
  6. LOVASTATIN [Concomitant]
  7. INSULIN (INSULIN) [Concomitant]
  8. FOSRENOL [Concomitant]
  9. ASPIRIN [Concomitant]
  10. COZAAR [Concomitant]
  11. NORVASC [Concomitant]
  12. MINOXIDIL [Concomitant]
  13. RENAGEL [Concomitant]
  14. PHOSLO [Concomitant]
  15. NEPHRO-VITE (VITAMINS NOS) [Concomitant]

REACTIONS (5)
  - BLOOD PARATHYROID HORMONE INCREASED [None]
  - BLOOD PHOSPHORUS INCREASED [None]
  - CONVULSION [None]
  - HYPERCALCAEMIA [None]
  - MUSCLE TWITCHING [None]
